FAERS Safety Report 9590728 (Version 1)
Quarter: 2013Q4

REPORT INFORMATION
  Report Type: Spontaneous
  Country: US (occurrence: US)
  Receive Date: 20131003
  Receipt Date: 20131003
  Transmission Date: 20140711
  Serious: No
  Sender: FDA-Public Use
  Company Number: US-AMGEN-USASP2012075914

PATIENT
  Age: 61 Year
  Sex: Female
  Weight: 97.96 kg

DRUGS (11)
  1. ENBREL [Suspect]
     Indication: RHEUMATOID ARTHRITIS
     Dosage: 50 MG, QWK
     Route: 058
  2. EDECRIN                            /00020501/ [Concomitant]
     Dosage: 25 MG, UNK
  3. COREG CR [Concomitant]
     Dosage: 10 MG, UNK
  4. PANTOPRAZOLE [Concomitant]
     Dosage: 20 MG, UNK
  5. PLAQUENIL                          /00072602/ [Concomitant]
     Dosage: 200 MG, UNK
  6. SIMVASTATIN [Concomitant]
     Dosage: 10 MG, UNK
  7. SPIRONOLACTON [Concomitant]
     Dosage: 25 MG, UNK
  8. FLEXERIL                           /00428402/ [Concomitant]
     Dosage: 5 MG, UNK
  9. AMITIZA [Concomitant]
     Dosage: 8 MUG, UNK
  10. LORTAB                             /00607101/ [Concomitant]
     Dosage: 5 UNK, UNK
  11. WOMEN^S MULTI [Concomitant]

REACTIONS (2)
  - Cough [Unknown]
  - Herpes zoster [Unknown]
